FAERS Safety Report 4851723-1 (Version None)
Quarter: 2005Q4

REPORT INFORMATION
  Report Type: 
  Country: None (occurrence: None)
  Receive Date: 20051209
  Receipt Date: 20051209
  Transmission Date: 20060501
  Serious: Yes (Other)
  Sender: FDA-Public Use
  Company Number: None

PATIENT
  Age: 47 Year
  Sex: Female
  Weight: 74.8435 kg

DRUGS (2)
  1. CIPRO [Suspect]
     Indication: ANTIBIOTIC PROPHYLAXIS
     Dosage: ONE DOSE - 400MG - IV
     Route: 042
     Dates: start: 20051207
  2. CIPRO [Suspect]
     Indication: PREOPERATIVE CARE
     Dosage: ONE DOSE - 400MG - IV
     Route: 042
     Dates: start: 20051207

REACTIONS (2)
  - PRURITUS [None]
  - SKIN DISCOLOURATION [None]
